FAERS Safety Report 9335140 (Version 1)
Quarter: 2013Q2

REPORT INFORMATION
  Report Type: Report from Study
  Country: US (occurrence: US)
  Receive Date: 20130606
  Receipt Date: 20130606
  Transmission Date: 20140414
  Serious: Yes (Hospitalization, Other)
  Sender: FDA-Public Use
  Company Number: US-US-EMD SERONO, INC.-7195282

PATIENT
  Age: 42 Year
  Sex: Female

DRUGS (2)
  1. REBIF [Suspect]
     Indication: MULTIPLE SCLEROSIS
     Route: 058
     Dates: start: 20120224
  2. ALEVE [Concomitant]
     Indication: PREMEDICATION

REACTIONS (8)
  - Drug hypersensitivity [Unknown]
  - Multiple sclerosis relapse [Recovered/Resolved]
  - Convulsion [Recovered/Resolved]
  - Tremor [Unknown]
  - Injection site cellulitis [Unknown]
  - Injection site pain [Unknown]
  - Injection site erythema [Unknown]
  - Fatigue [Not Recovered/Not Resolved]
